FAERS Safety Report 7973238-4 (Version None)
Quarter: 2011Q4

REPORT INFORMATION
  Report Type: 
  Country: None (occurrence: None)
  Receive Date: 20111213
  Receipt Date: 20111208
  Transmission Date: 20120403
  Serious: No
  Sender: FDA-Public Use
  Company Number: PHEH2011US00826

PATIENT
  Sex: Male

DRUGS (4)
  1. PLAVIX [Concomitant]
     Dosage: UNK UKN, UNK
  2. LIPITOR [Concomitant]
     Dosage: UNK UKN, UNK
  3. RAMIPRIL [Concomitant]
     Dosage: UNK UKN, UNK
  4. TASIGNA [Suspect]
     Indication: CHRONIC MYELOID LEUKAEMIA
     Dosage: 300 MG, BID
     Route: 048
     Dates: start: 20110408

REACTIONS (10)
  - DYSPEPSIA [None]
  - ARTHRALGIA [None]
  - OEDEMA PERIPHERAL [None]
  - FATIGUE [None]
  - BALANCE DISORDER [None]
  - VOMITING [None]
  - NAUSEA [None]
  - DYSPHAGIA [None]
  - SENSATION OF HEAVINESS [None]
  - RASH PRURITIC [None]
